FAERS Safety Report 7900862-7 (Version None)
Quarter: 2011Q4

REPORT INFORMATION
  Report Type: 
  Country: None (occurrence: None)
  Receive Date: 20111108
  Receipt Date: 20111108
  Transmission Date: 20120403
  Serious: Yes (Other)
  Sender: FDA-Public Use
  Company Number: None

PATIENT
  Age: 25 Year
  Sex: Female
  Weight: 81.646 kg

DRUGS (1)
  1. GEODON [Suspect]
     Indication: SLEEP DISORDER
     Dosage: 1 CAPSULE
     Route: 048
     Dates: start: 20111105, end: 20111106

REACTIONS (12)
  - HYPERHIDROSIS [None]
  - VOMITING [None]
  - SUICIDAL IDEATION [None]
  - DIARRHOEA [None]
  - HEART RATE INCREASED [None]
  - FEELING ABNORMAL [None]
  - HEADACHE [None]
  - DYSPNOEA [None]
  - DIZZINESS POSTURAL [None]
  - SLUGGISHNESS [None]
  - CRYING [None]
  - NAUSEA [None]
